FAERS Safety Report 6158091-6 (Version None)
Quarter: 2009Q2

REPORT INFORMATION
  Report Type: 
  Country: None (occurrence: None)
  Receive Date: 20090417
  Receipt Date: 20090413
  Transmission Date: 20091009
  Serious: Yes (Hospitalization)
  Sender: FDA-Public Use
  Company Number: PHEH2009US03638

PATIENT
  Sex: Male

DRUGS (2)
  1. TEKTURNA [Suspect]
     Indication: HYPERTENSION
     Dosage: UNK
     Dates: start: 20090401, end: 20090401
  2. MICARDIS [Suspect]

REACTIONS (2)
  - HEPATIC ENZYME INCREASED [None]
  - HYPOTENSION [None]
